FAERS Safety Report 21908846 (Version 1)
Quarter: 2023Q1

REPORT INFORMATION
  Report Type: Spontaneous
  Country: IN (occurrence: IN)
  Receive Date: 20230125
  Receipt Date: 20230125
  Transmission Date: 20230418
  Serious: Yes (Hospitalization, Other)
  Sender: FDA-Public Use
  Company Number: IN-PFIZER INC-PV202300013407

PATIENT
  Sex: Female

DRUGS (1)
  1. CRIZOTINIB [Suspect]
     Active Substance: CRIZOTINIB
     Indication: Lung adenocarcinoma
     Dosage: 250 MG, CYCLIC (1-0-1)
     Route: 048
     Dates: end: 202211

REACTIONS (5)
  - Cellulitis [Recovering/Resolving]
  - Pyrexia [Unknown]
  - Swelling [Unknown]
  - Skin exfoliation [Unknown]
  - Oedema peripheral [Recovering/Resolving]
